FAERS Safety Report 16834132 (Version 10)
Quarter: 2021Q4

REPORT INFORMATION
  Report Type: Spontaneous
  Country: US (occurrence: US)
  Receive Date: 20190920
  Receipt Date: 20211020
  Transmission Date: 20220303
  Serious: Yes (Other)
  Sender: FDA-Public Use
  Company Number: US-PFIZER INC-2019406403

PATIENT
  Age: 82 Year
  Sex: Male
  Weight: 122 kg

DRUGS (19)
  1. LYRICA [Suspect]
     Active Substance: PREGABALIN
     Indication: Blood glucose abnormal
     Dosage: 150 MG, 3X/DAY
     Route: 048
     Dates: start: 2011
  2. LYRICA [Suspect]
     Active Substance: PREGABALIN
     Indication: Neuralgia
     Dosage: 150 MG, 3X/DAY
     Route: 048
     Dates: start: 20161008
  3. LYRICA [Suspect]
     Active Substance: PREGABALIN
     Indication: Pain in extremity
     Dosage: 150 MG, 3X/DAY
     Route: 048
     Dates: start: 20201118
  4. LYRICA [Suspect]
     Active Substance: PREGABALIN
     Indication: Diabetic neuropathy
  5. ALLOPURINOL [Concomitant]
     Active Substance: ALLOPURINOL
     Dosage: UNK (300)
     Dates: start: 1995
  6. AMLODIPINE AND VALSARTAN [Concomitant]
     Active Substance: AMLODIPINE\VALSARTAN
     Dosage: UNK (10-320)
     Dates: start: 2000
  7. ATORVASTATIN [Concomitant]
     Active Substance: ATORVASTATIN
     Dosage: 10 MG, UNK
     Dates: start: 2000
  8. DONEPEZIL HYDROCHLORIDE [Concomitant]
     Active Substance: DONEPEZIL HYDROCHLORIDE
     Dosage: 5 MG, UNK
     Dates: start: 2019
  9. ELIQUIS [Concomitant]
     Active Substance: APIXABAN
     Dosage: 5 MG, UNK
     Dates: start: 2018
  10. GLIMEPIRIDE [Concomitant]
     Active Substance: GLIMEPIRIDE
     Dosage: 4 MG, UNK
     Dates: start: 1999
  11. HYDRALAZINE [Concomitant]
     Active Substance: HYDRALAZINE HYDROCHLORIDE
     Dosage: 50 MG, UNK
     Dates: start: 2005
  12. JANUMET [Concomitant]
     Active Substance: METFORMIN HYDROCHLORIDE\SITAGLIPTIN PHOSPHATE
     Dosage: UNK (50/1000 MG)
     Dates: start: 2003
  13. MAGNESIUM CITRATE [Concomitant]
     Active Substance: MAGNESIUM CITRATE
     Dosage: UNK (100)
     Dates: start: 2016
  14. OMEPRAZOLE [Concomitant]
     Active Substance: OMEPRAZOLE
     Dosage: 40 MG, UNK
     Dates: start: 2019
  15. POTASSIUM CHLORIDE [Concomitant]
     Active Substance: POTASSIUM CHLORIDE
     Dosage: 20 MG, UNK
     Dates: start: 2005
  16. RANITIDINE [Concomitant]
     Active Substance: RANITIDINE
     Dosage: 150 MG, UNK
  17. SYMBICORT [Concomitant]
     Active Substance: BUDESONIDE\FORMOTEROL FUMARATE DIHYDRATE
     Dosage: UNK
     Dates: start: 2019
  18. METFORMIN HYDROCHLORIDE [Concomitant]
     Active Substance: METFORMIN HYDROCHLORIDE
     Dosage: UNK
  19. VALSARTAN [Concomitant]
     Active Substance: VALSARTAN
     Dosage: UNK

REACTIONS (7)
  - Neoplasm malignant [Not Recovered/Not Resolved]
  - Dementia [Unknown]
  - Cerebrovascular accident [Unknown]
  - Arthritis [Unknown]
  - Pain in extremity [Unknown]
  - Blood glucose increased [Unknown]
  - Nervousness [Unknown]

NARRATIVE: CASE EVENT DATE: 20210101
